FAERS Safety Report 17249749 (Version 4)
Quarter: 2025Q1

REPORT INFORMATION
  Report Type: Spontaneous
  Country: CZ (occurrence: CZ)
  Receive Date: 20200109
  Receipt Date: 20250320
  Transmission Date: 20250409
  Serious: Yes (Hospitalization, Other)
  Sender: AUROBINDO
  Company Number: CZ-002147023-NVSC2019CZ079048

PATIENT
  Age: 85 Year
  Sex: Male
  Weight: 64 kg

DRUGS (8)
  1. ACEBUTOLOL [Suspect]
     Active Substance: ACEBUTOLOL
     Indication: Product used for unknown indication
     Route: 065
  2. METFORMIN [Suspect]
     Active Substance: METFORMIN HYDROCHLORIDE
     Indication: Product used for unknown indication
     Route: 065
  3. AMIODARONE [Suspect]
     Active Substance: AMIODARONE
     Indication: Product used for unknown indication
     Route: 065
  4. INDAPAMIDE\PERINDOPRIL [Suspect]
     Active Substance: INDAPAMIDE\PERINDOPRIL
     Indication: Product used for unknown indication
     Route: 065
  5. LEVOTHYROXINE [Suspect]
     Active Substance: LEVOTHYROXINE
     Indication: Product used for unknown indication
     Route: 065
  6. ASPIRIN [Suspect]
     Active Substance: ASPIRIN
     Indication: Product used for unknown indication
     Route: 065
  7. ISOSORBIDE MONONITRATE [Suspect]
     Active Substance: ISOSORBIDE MONONITRATE
     Indication: Product used for unknown indication
     Route: 065
  8. TRIMETAZIDINE [Suspect]
     Active Substance: TRIMETAZIDINE
     Indication: Product used for unknown indication
     Route: 065

REACTIONS (6)
  - Mucosal erosion [Recovered/Resolved]
  - Linear IgA disease [Recovered/Resolved]
  - Blister [Recovered/Resolved]
  - Asthenia [Unknown]
  - Pruritus [Recovered/Resolved]
  - Rash erythematous [Recovered/Resolved]

NARRATIVE: CASE EVENT DATE: 20160101
